FAERS Safety Report 4889354-X (Version None)
Quarter: 2006Q1

REPORT INFORMATION
  Report Type: 
  Country: None (occurrence: None)
  Receive Date: 20060120
  Receipt Date: 20060101
  Transmission Date: 20060701
  Serious: Yes (Death)
  Sender: FDA-Public Use
  Company Number: 200610255BWH

PATIENT
  Sex: 0

DRUGS (1)
  1. SORAFENIB [Suspect]
     Indication: SQUAMOUS CELL CARCINOMA
     Dosage: 400 MG BID ORAL
     Route: 048
     Dates: start: 20050228, end: 20050712

REACTIONS (4)
  - DIZZINESS [None]
  - FATIGUE [None]
  - MALIGNANT NEOPLASM PROGRESSION [None]
  - SQUAMOUS CELL CARCINOMA [None]
